FAERS Safety Report 9916843 (Version 1)
Quarter: 2014Q1

REPORT INFORMATION
  Report Type: Spontaneous
  Country: FR (occurrence: FR)
  Receive Date: 20140221
  Receipt Date: 20140221
  Transmission Date: 20141002
  Serious: Yes (Hospitalization, Other)
  Sender: FDA-Public Use
  Company Number: FR-ENDO PHARMACEUTICALS INC.-FRVA20140006

PATIENT
  Age: 20 Year
  Sex: Female

DRUGS (1)
  1. FROVA TABLETS 2.5MG [Suspect]
     Indication: HEADACHE
     Dosage: MORE THAN 5MG
     Route: 048

REACTIONS (3)
  - Drug dependence [Unknown]
  - Intentional drug misuse [Unknown]
  - Transaminases increased [Unknown]
